FAERS Safety Report 18960993 (Version 1)
Quarter: 2021Q1

REPORT INFORMATION
  Report Type: Spontaneous
  Country: US (occurrence: US)
  Receive Date: 20210303
  Receipt Date: 20210303
  Transmission Date: 20210420
  Serious: Yes (Other)
  Sender: FDA-Public Use
  Company Number: US-BLUEPRINT MEDICINES CORPORATION-SP-US-2021-000245

PATIENT
  Sex: Male

DRUGS (2)
  1. SYNTHROID [Concomitant]
     Active Substance: LEVOTHYROXINE SODIUM
     Indication: PRODUCT USED FOR UNKNOWN INDICATION
     Route: 065
  2. GAVRETO [Suspect]
     Active Substance: PRALSETINIB
     Indication: THYROID CANCER
     Route: 048
     Dates: start: 20201218

REACTIONS (2)
  - Haematochezia [Unknown]
  - Enterocolitis [Unknown]
